FAERS Safety Report 20421535 (Version 1)
Quarter: 2022Q1

REPORT INFORMATION
  Report Type: Spontaneous
  Country: US (occurrence: None)
  Receive Date: 20220203
  Receipt Date: 20220203
  Transmission Date: 20220423
  Serious: No
  Sender: FDA-Public Use
  Company Number: None

PATIENT
  Age: 75 Year
  Sex: Male

DRUGS (1)
  1. CASIRIVIMAB\IMDEVIMAB [Suspect]
     Active Substance: CASIRIVIMAB\IMDEVIMAB
     Dosage: OTHER QUANTITY : 600/600MG;?FREQUENCY : ONCE;?
     Route: 042
     Dates: start: 20211125, end: 20211125

REACTIONS (5)
  - Infusion related reaction [None]
  - Asthenia [None]
  - Fatigue [None]
  - Cough [None]
  - Rash [None]

NARRATIVE: CASE EVENT DATE: 20211126
